FAERS Safety Report 19753059 (Version 1)
Quarter: 2021Q3

REPORT INFORMATION
  Report Type: Spontaneous
  Country: TR (occurrence: TR)
  Receive Date: 20210826
  Receipt Date: 20210826
  Transmission Date: 20211014
  Serious: Yes (Life-Threatening)
  Sender: FDA-Public Use
  Company Number: TR-AMERICAN REGENT INC-2021002254

PATIENT
  Age: 41 Year
  Sex: Female
  Weight: 68 kg

DRUGS (1)
  1. FERINJECT [Suspect]
     Active Substance: FERRIC CARBOXYMALTOSE
     Indication: ANAEMIA
     Dosage: 500 UNKNOWN, DAILY
     Route: 042
     Dates: start: 20210804, end: 20210804

REACTIONS (2)
  - Respiratory distress [Recovered/Resolved]
  - Erythema [Recovered/Resolved]

NARRATIVE: CASE EVENT DATE: 20210804
